FAERS Safety Report 9773846 (Version 2)
Quarter: 2015Q4

REPORT INFORMATION
  Report Type: Report from Study
  Country: US (occurrence: US)
  Receive Date: 20131220
  Receipt Date: 20151110
  Transmission Date: 20160305
  Serious: Yes (Hospitalization, Other)
  Sender: FDA-Public Use
  Company Number: US-ROCHE-1320280

PATIENT
  Sex: Female

DRUGS (8)
  1. ASPIRIN. [Concomitant]
     Active Substance: ASPIRIN
     Route: 065
  2. LUCENTIS [Suspect]
     Active Substance: RANIBIZUMAB
     Indication: NEOVASCULAR AGE-RELATED MACULAR DEGENERATION
     Dosage: RIGHT EYE, FREQUENCY: 6-8 WEEKS
     Route: 065
     Dates: start: 2011
  3. LIPITOR [Concomitant]
     Active Substance: ATORVASTATIN CALCIUM
     Route: 065
  4. LUCENTIS [Suspect]
     Active Substance: RANIBIZUMAB
     Indication: NEOVASCULAR AGE-RELATED MACULAR DEGENERATION
  5. AVASTIN [Suspect]
     Active Substance: BEVACIZUMAB
     Indication: NEOVASCULAR AGE-RELATED MACULAR DEGENERATION
     Dosage: VARYING FREQUENCY DEPENDENT ON EXAM, RIGHT EYE
     Route: 065
     Dates: start: 2002, end: 2011
  6. ASPIRIN. [Concomitant]
     Active Substance: ASPIRIN
     Dosage: D/C
     Route: 065
  7. COMBIGAN [Concomitant]
     Active Substance: BRIMONIDINE TARTRATE\TIMOLOL MALEATE
     Route: 047
  8. LATANOPROST EYE DROPS [Concomitant]
     Active Substance: LATANOPROST
     Route: 047

REACTIONS (9)
  - Discomfort [Recovered/Resolved]
  - Transient ischaemic attack [Recovered/Resolved]
  - Macular degeneration [Recovered/Resolved]
  - Ear disorder [Unknown]
  - Visual acuity reduced [Unknown]
  - Foreign body sensation in eyes [Recovered/Resolved]
  - Blindness [Not Recovered/Not Resolved]
  - Drug ineffective [Unknown]
  - Hearing impaired [Unknown]

NARRATIVE: CASE EVENT DATE: 2011
